FAERS Safety Report 26135300 (Version 1)
Quarter: 2025Q4

REPORT INFORMATION
  Report Type: Spontaneous
  Country: US (occurrence: None)
  Receive Date: 20251208
  Receipt Date: 20251208
  Transmission Date: 20260117
  Serious: Yes (Other)
  Sender: FDA-CTU
  Company Number: None

PATIENT
  Age: 24 Year
  Sex: Female

DRUGS (4)
  1. CYANOCOBALAMIN\NALTREXONE\TOPIRAMATE [Suspect]
     Active Substance: CYANOCOBALAMIN\NALTREXONE\TOPIRAMATE
     Indication: Weight decreased
     Dosage: DAILY ORAL
     Route: 048
     Dates: start: 20250929, end: 20251206
  2. BUPROPION [Suspect]
     Active Substance: BUPROPION
     Dates: start: 20250929, end: 20251206
  3. METFORMIN [Suspect]
     Active Substance: METFORMIN HYDROCHLORIDE
     Dates: start: 20251020, end: 20251206
  4. ONDANSETRON [Suspect]
     Active Substance: ONDANSETRON

REACTIONS (3)
  - Nausea [None]
  - Dizziness [None]
  - Blood glucose decreased [None]

NARRATIVE: CASE EVENT DATE: 20251204
